FAERS Safety Report 16912751 (Version 1)
Quarter: 2019Q4

REPORT INFORMATION
  Report Type: Spontaneous
  Country: US (occurrence: US)
  Receive Date: 20190821
  Receipt Date: 20190821
  Transmission Date: 20200122
  Serious: No
  Sender: FDA-Public Use
  Company Number: None

PATIENT
  Age: 57 Year
  Sex: Male

DRUGS (1)
  1. SILDENAFIL. [Suspect]
     Active Substance: SILDENAFIL
     Indication: ERECTILE DYSFUNCTION
     Route: 048
     Dates: start: 20180127, end: 20190606

REACTIONS (3)
  - Cerebrovascular accident [None]
  - Transient ischaemic attack [None]
  - Atrial fibrillation [None]

NARRATIVE: CASE EVENT DATE: 20190606
